FAERS Safety Report 8358377-0 (Version None)
Quarter: 2012Q2

REPORT INFORMATION
  Report Type: 
  Country: None (occurrence: None)
  Receive Date: 20120514
  Receipt Date: 20110506
  Transmission Date: 20120825
  Serious: No
  Sender: FDA-Public Use
  Company Number: US-ALEXION-A201100666

PATIENT
  Sex: Male

DRUGS (6)
  1. SOLIRIS [Suspect]
     Dosage: 900 MG Q2W
     Route: 042
  2. LORTAB [Concomitant]
     Indication: PAIN
     Dosage: 10 MG PRN
     Route: 048
  3. COUMADIN [Concomitant]
     Dosage: 7.5 MG QD
     Route: 048
  4. HUMALOG [Concomitant]
     Indication: DIABETES MELLITUS
     Dosage: 25 UNITS BID
     Route: 058
  5. SOLIRIS [Suspect]
     Indication: PAROXYSMAL NOCTURNAL HAEMOGLOBINURIA
     Dosage: 600 MG QW
     Route: 042
     Dates: start: 20100409
  6. FOLIC ACID [Concomitant]
     Dosage: 1 MG QD
     Route: 048

REACTIONS (1)
  - HAEMATOMA [None]
